FAERS Safety Report 14158145 (Version 1)
Quarter: 2017Q4

REPORT INFORMATION
  Report Type: Spontaneous
  Country: US (occurrence: US)
  Receive Date: 20171103
  Receipt Date: 20171103
  Transmission Date: 20180321
  Serious: Yes (Other)
  Sender: FDA-Public Use
  Company Number: US-SA-2017SA207875

PATIENT
  Age: 39 Year
  Sex: Female

DRUGS (5)
  1. SOLOSTAR [Suspect]
     Active Substance: DEVICE
     Indication: TYPE 1 DIABETES MELLITUS
  2. APIDRA [Suspect]
     Active Substance: INSULIN GLULISINE
     Indication: TYPE 1 DIABETES MELLITUS
     Dosage: DOSE- 2-20 UNITS SLIDING SCALE
     Route: 058
     Dates: start: 20170905, end: 20171019
  3. APIDRA SOLOSTAR [Suspect]
     Active Substance: INSULIN GLULISINE
     Indication: TYPE 1 DIABETES MELLITUS
     Route: 058
  4. SOLOSTAR [Suspect]
     Active Substance: DEVICE
     Indication: TYPE 1 DIABETES MELLITUS
     Dates: start: 20170905
  5. LANTUS SOLOSTAR [Suspect]
     Active Substance: INSULIN GLARGINE
     Indication: TYPE 1 DIABETES MELLITUS
     Dosage: DOSE:20 UNIT(S)
     Route: 051
     Dates: start: 20170905

REACTIONS (13)
  - Pancreatic enzymes increased [Unknown]
  - Nausea [Unknown]
  - Weight decreased [Unknown]
  - Eructation [Unknown]
  - Product use issue [Unknown]
  - Loss of consciousness [Unknown]
  - Tenderness [Unknown]
  - Crying [Unknown]
  - Peripheral swelling [Recovered/Resolved]
  - Feeding disorder [Unknown]
  - Injection site pain [Recovered/Resolved]
  - Pain [Unknown]
  - Pain in extremity [Unknown]

NARRATIVE: CASE EVENT DATE: 2017
